FAERS Safety Report 10228799 (Version 3)
Quarter: 2014Q3

REPORT INFORMATION
  Report Type: Spontaneous
  Country: FR (occurrence: FR)
  Receive Date: 20140610
  Receipt Date: 20140917
  Transmission Date: 20150326
  Serious: Yes (Hospitalization)
  Sender: FDA-Public Use
  Company Number: FR-ASTRAZENECA-2014SE39501

PATIENT
  Age: 18434 Day
  Sex: Male

DRUGS (4)
  1. COTRIATEC [Suspect]
     Active Substance: HYDROCHLOROTHIAZIDE\RAMIPRIL
     Indication: HYPERTENSION
     Route: 048
     Dates: end: 20140510
  2. MOPRAL [Suspect]
     Active Substance: OMEPRAZOLE SODIUM
     Route: 048
     Dates: start: 20140508, end: 20140509
  3. PLAQUENIL [Concomitant]
     Active Substance: HYDROXYCHLOROQUINE SULFATE
     Dosage: TWO TIMES A DAY
     Route: 048
     Dates: start: 201312, end: 20140507
  4. PROFENID [Suspect]
     Active Substance: KETOPROFEN
     Route: 048
     Dates: start: 20140508, end: 20140510

REACTIONS (4)
  - Angioedema [Unknown]
  - Urticaria [Recovered/Resolved]
  - Tongue oedema [Recovered/Resolved]
  - Localised oedema [Recovered/Resolved]

NARRATIVE: CASE EVENT DATE: 20140510
